FAERS Safety Report 8394943-4 (Version None)
Quarter: 2012Q1

REPORT INFORMATION
  Report Type: 
  Country: None (occurrence: None)
  Receive Date: 20120323
  Receipt Date: 20110318
  Transmission Date: 20120608
  Serious: Yes (Other)
  Sender: FDA-Public Use
  Company Number: 163-21880-11032455

PATIENT
  Age: 41 Year
  Sex: Female

DRUGS (3)
  1. REVLIMID [Suspect]
     Indication: MULTIPLE MYELOMA
     Dosage: 25 MG, DAILY X 24 DAYS, PO ; 25 MG, DAILY X 14 DAYS, PO ; PO
     Route: 048
     Dates: start: 20110308, end: 20110301
  2. REVLIMID [Suspect]
     Indication: MULTIPLE MYELOMA
     Dosage: 25 MG, DAILY X 24 DAYS, PO ; 25 MG, DAILY X 14 DAYS, PO ; PO
     Route: 048
     Dates: start: 20110318
  3. REVLIMID [Suspect]
     Indication: MULTIPLE MYELOMA
     Dosage: 25 MG, DAILY X 24 DAYS, PO ; 25 MG, DAILY X 14 DAYS, PO ; PO
     Route: 048
     Dates: start: 20110202

REACTIONS (6)
  - THROMBOSIS [None]
  - OEDEMA PERIPHERAL [None]
  - PYREXIA [None]
  - PAIN IN EXTREMITY [None]
  - PAINFUL RESPIRATION [None]
  - INFLUENZA [None]
